FAERS Safety Report 11592327 (Version 1)
Quarter: 2015Q4

REPORT INFORMATION
  Report Type: Spontaneous
  Country: US (occurrence: US)
  Receive Date: 20151005
  Receipt Date: 20151005
  Transmission Date: 20160304
  Serious: Yes (Other)
  Sender: FDA-Public Use
  Company Number: US-SHIRE-US201512100

PATIENT
  Age: 35 Year
  Sex: Female
  Weight: 47.62 kg

DRUGS (5)
  1. VYVANSE [Suspect]
     Active Substance: LISDEXAMFETAMINE DIMESYLATE
     Dosage: 50 MG, UNKNOWN
     Route: 048
  2. VYVANSE [Suspect]
     Active Substance: LISDEXAMFETAMINE DIMESYLATE
     Dosage: 40 MG, UNK
     Route: 048
  3. VYVANSE [Suspect]
     Active Substance: LISDEXAMFETAMINE DIMESYLATE
     Indication: ATTENTION DEFICIT/HYPERACTIVITY DISORDER
     Dosage: 30 MG, UNKNOWN
     Route: 048
  4. RITALIN [Concomitant]
     Active Substance: METHYLPHENIDATE HYDROCHLORIDE
     Indication: ATTENTION DEFICIT/HYPERACTIVITY DISORDER
     Dosage: UNK, UNKNOWN
     Route: 065
  5. VYVANSE [Suspect]
     Active Substance: LISDEXAMFETAMINE DIMESYLATE
     Indication: IMPULSE-CONTROL DISORDER
     Dosage: 40 MG, UNK
     Route: 048
     Dates: start: 2013

REACTIONS (12)
  - Optic nerve neoplasm [Unknown]
  - Increased appetite [Unknown]
  - Somnolence [Unknown]
  - Drug effect decreased [Unknown]
  - Drug withdrawal convulsions [Not Recovered/Not Resolved]
  - Aggression [Unknown]
  - Drug ineffective [Unknown]
  - Crying [Unknown]
  - Hostility [Unknown]
  - Agitation [Unknown]
  - Mania [Unknown]
  - Anxiety [Unknown]

NARRATIVE: CASE EVENT DATE: 2014
